FAERS Safety Report 5531692-1 (Version None)
Quarter: 2007Q4

REPORT INFORMATION
  Report Type: 
  Country: None (occurrence: None)
  Receive Date: 20071128
  Receipt Date: 20071115
  Transmission Date: 20080405
  Serious: Yes (Hospitalization)
  Sender: FDA-Public Use
  Company Number: 2007SP023134

PATIENT
  Age: 67 Year
  Sex: Female
  Weight: 66 kg

DRUGS (2)
  1. NASONEX [Suspect]
     Indication: RHINITIS SEASONAL
     Dosage: QD; NAS
     Route: 045
     Dates: start: 20070315, end: 20070805
  2. FLIXOTIDE [Concomitant]

REACTIONS (3)
  - CHEST DISCOMFORT [None]
  - INTRAOCULAR PRESSURE INCREASED [None]
  - OPTIC NERVE INJURY [None]
